FAERS Safety Report 4930434-8 (Version None)
Quarter: 2006Q1

REPORT INFORMATION
  Report Type: 
  Country: None (occurrence: None)
  Receive Date: 20060227
  Receipt Date: 20060214
  Transmission Date: 20060701
  Serious: No
  Sender: FDA-Public Use
  Company Number: 221655

PATIENT
  Age: 63 Year
  Sex: Female
  Weight: 93 kg

DRUGS (4)
  1. RAPTIVA [Suspect]
     Indication: PSORIASIS
     Dosage: 0.9, 1/WEEK,  SUBCUTANEOUS
     Route: 058
     Dates: start: 20050927, end: 20060131
  2. DYAZIDE (HYDROCHLOROTHIAZIDE, TRIAMTERE) [Concomitant]
  3. DETROL [Concomitant]
  4. SYNTHROID [Concomitant]

REACTIONS (4)
  - CERUMEN IMPACTION [None]
  - DEAFNESS BILATERAL [None]
  - EAR DISORDER [None]
  - PSORIASIS [None]
